FAERS Safety Report 23161306 (Version 1)
Quarter: 2023Q4

REPORT INFORMATION
  Report Type: Spontaneous
  Country: US (occurrence: US)
  Receive Date: 20231108
  Receipt Date: 20231108
  Transmission Date: 20240110
  Serious: No
  Sender: FDA-Public Use
  Company Number: US-SA-SAC20231101001465

PATIENT
  Sex: Female
  Weight: 58.96 kg

DRUGS (11)
  1. DUPIXENT [Suspect]
     Active Substance: DUPILUMAB
     Indication: Dermatitis allergic
     Dosage: 300 MG, QOW
     Route: 058
     Dates: start: 20171114
  2. DUPIXENT [Suspect]
     Active Substance: DUPILUMAB
     Indication: Dermatitis atopic
  3. ZOLOFT [Concomitant]
     Active Substance: SERTRALINE HYDROCHLORIDE
  4. TRAZODONE HCL [Concomitant]
     Active Substance: TRAZODONE HYDROCHLORIDE
  5. CYCLOBENZAPRINE HYDROCHLORIDE [Concomitant]
     Active Substance: CYCLOBENZAPRINE HYDROCHLORIDE
  6. ACETAMINOPHEN\HYDROCODONE [Concomitant]
     Active Substance: ACETAMINOPHEN\HYDROCODONE
  7. SYNTHROID [Concomitant]
     Active Substance: LEVOTHYROXINE SODIUM
  8. CYMBALTA [Concomitant]
     Active Substance: DULOXETINE HYDROCHLORIDE
  9. ZYRTEC [Concomitant]
     Active Substance: CETIRIZINE HYDROCHLORIDE
  10. EFFEXOR XR [Concomitant]
     Active Substance: VENLAFAXINE HYDROCHLORIDE
  11. CYCLOBENZAPRINE HYDROCHLORIDE [Concomitant]
     Active Substance: CYCLOBENZAPRINE HYDROCHLORIDE

REACTIONS (1)
  - Lung disorder [Recovering/Resolving]
